FAERS Safety Report 14378776 (Version 4)
Quarter: 2018Q1

REPORT INFORMATION
  Report Type: Spontaneous
  Country: US (occurrence: US)
  Receive Date: 20180112
  Receipt Date: 20180302
  Transmission Date: 20180509
  Serious: Yes (Hospitalization)
  Sender: FDA-Public Use
  Company Number: US-ASTRAZENECA-2018SE02206

PATIENT
  Age: 45 Year
  Sex: Female
  Weight: 166.5 kg

DRUGS (5)
  1. SYMBICORT [Suspect]
     Active Substance: BUDESONIDE\FORMOTEROL FUMARATE DIHYDRATE
     Indication: ASTHMA
     Dosage: 160/4.5MCG 2 INHALATIONS, TWO TIMES A DAY
     Route: 055
     Dates: start: 201212
  2. SYMBICORT [Suspect]
     Active Substance: BUDESONIDE\FORMOTEROL FUMARATE DIHYDRATE
     Indication: CHRONIC OBSTRUCTIVE PULMONARY DISEASE
     Dosage: 160/4.5MCG 2 INHALATIONS, TWO TIMES A DAY
     Route: 055
     Dates: start: 201212
  3. OXYMORPHONE [Concomitant]
     Active Substance: OXYMORPHONE
     Indication: PAIN
     Route: 048
  4. PROAIR HFA [Concomitant]
     Active Substance: ALBUTEROL SULFATE
     Indication: SUPPLEMENTATION THERAPY
     Route: 055
  5. HYDROCODONE [Concomitant]
     Active Substance: HYDROCODONE
     Indication: PAIN
     Dosage: 2.0DF AS REQUIRED
     Route: 048

REACTIONS (9)
  - Neuropathy peripheral [Unknown]
  - Drug dose omission [Unknown]
  - Acute respiratory failure [Unknown]
  - Depression [Unknown]
  - Intervertebral disc disorder [Unknown]
  - Pain [Unknown]
  - Device failure [Unknown]
  - Wrong technique in product usage process [Unknown]
  - Device issue [Unknown]

NARRATIVE: CASE EVENT DATE: 2015
